FAERS Safety Report 7212740-X (Version None)
Quarter: 2010Q4

REPORT INFORMATION
  Report Type: 
  Country: None (occurrence: None)
  Receive Date: 20101229
  Receipt Date: 20101217
  Transmission Date: 20110411
  Serious: Yes (Death)
  Sender: FDA-Public Use
  Company Number: CV20100692

PATIENT
  Age: 23 Year
  Sex: Male

DRUGS (3)
  1. PROPOFOL [Suspect]
     Indication: INDUCTION AND MAINTENANCE OF ANAESTHESIA
     Dosage: (DAILY DOSE OF 4 MG/KG/H) INTRAVENOUS (NOT OTHERWISE SPECIFIED)
     Route: 042
  2. FENTANYL [Concomitant]
  3. MIDAZOLAM (MIDAZOLAM) (MIDAZOLAM) [Concomitant]

REACTIONS (5)
  - CARDIAC ARREST [None]
  - CARDIOVASCULAR DISORDER [None]
  - ELECTROCARDIOGRAM ST SEGMENT ELEVATION [None]
  - ELECTROCARDIOGRAM T WAVE INVERSION [None]
  - PROPOFOL INFUSION SYNDROME [None]
